FAERS Safety Report 11696360 (Version 1)
Quarter: 2015Q4

REPORT INFORMATION
  Report Type: Spontaneous
  Country: FR (occurrence: FR)
  Receive Date: 20151104
  Receipt Date: 20151104
  Transmission Date: 20160304
  Serious: Yes (Other)
  Sender: FDA-Public Use
  Company Number: FR-PFIZER INC-2015374500

PATIENT
  Age: 16 Year
  Sex: Male

DRUGS (1)
  1. ORELOX [Suspect]
     Active Substance: CEFPODOXIME
     Dosage: UNK

REACTIONS (2)
  - Abdominal pain [Unknown]
  - Diarrhoea haemorrhagic [Unknown]
